FAERS Safety Report 9200544 (Version 2)
Quarter: 2013Q2

REPORT INFORMATION
  Report Type: Spontaneous
  Country: CH (occurrence: CH)
  Receive Date: 20130329
  Receipt Date: 20130404
  Transmission Date: 20140414
  Serious: Yes (Hospitalization, Disabling, Other)
  Sender: FDA-Public Use
  Company Number: CH-US-EMD SERONO, INC.-7201713

PATIENT
  Sex: Female
  Weight: 52 kg

DRUGS (1)
  1. REBIF [Suspect]
     Indication: MULTIPLE SCLEROSIS
     Route: 058

REACTIONS (4)
  - Abscess limb [Recovered/Resolved with Sequelae]
  - Injection site abscess [Unknown]
  - Injury associated with device [Unknown]
  - Device issue [Unknown]
